FAERS Safety Report 9700833 (Version 2)
Quarter: 2013Q4

REPORT INFORMATION
  Report Type: Spontaneous
  Country: US (occurrence: US)
  Receive Date: 20131121
  Receipt Date: 20131121
  Transmission Date: 20140711
  Serious: Yes (Other)
  Sender: FDA-Public Use
  Company Number: US-TEVA-344777USA

PATIENT
  Age: 34 Year
  Sex: Female
  Weight: 57.2 kg

DRUGS (2)
  1. PARAGARD 380A [Suspect]
     Indication: CONTRACEPTION
     Route: 015
     Dates: start: 20080814, end: 20120620
  2. MULTIVITAMIN [Concomitant]

REACTIONS (4)
  - Ectopic pregnancy [Recovered/Resolved]
  - Drug ineffective [Unknown]
  - Abortion induced [Recovered/Resolved]
  - Menstruation delayed [Not Recovered/Not Resolved]
